FAERS Safety Report 5570300-0 (Version None)
Quarter: 2007Q4

REPORT INFORMATION
  Report Type: 
  Country: None (occurrence: None)
  Receive Date: 20071219
  Receipt Date: 20071219
  Transmission Date: 20080405
  Serious: Yes (Hospitalization)
  Sender: FDA-Public Use
  Company Number: None

PATIENT
  Sex: Male
  Weight: 78 kg

DRUGS (5)
  1. CYCLOPHOSPHAMIDE [Suspect]
     Dosage: 1200 MG
  2. DOXORUBICIN HYDROCHLORIDE [Suspect]
     Dosage: 80 MG
  3. ETOPOSIDE [Suspect]
     Dosage: 390 MG
  4. PREDNISONE TAB [Suspect]
     Dosage: 500 MG
  5. VINCRISTINE SULFATE [Suspect]
     Dosage: 3 MG

REACTIONS (3)
  - DEHYDRATION [None]
  - FEBRILE NEUTROPENIA [None]
  - MUCOSAL INFLAMMATION [None]
